FAERS Safety Report 6959347-7 (Version None)
Quarter: 2010Q3

REPORT INFORMATION
  Report Type: 
  Country: None (occurrence: None)
  Receive Date: 20100831
  Receipt Date: 20100831
  Transmission Date: 20110219
  Serious: Yes (Other)
  Sender: FDA-Public Use
  Company Number: None

PATIENT
  Sex: Male
  Weight: 77.1115 kg

DRUGS (3)
  1. SINGULAIR [Suspect]
     Indication: ASTHMA
     Dosage: 1 DAY PO
     Route: 048
     Dates: start: 20060905, end: 20080226
  2. EFFEXOR XR [Suspect]
     Indication: ANXIETY
     Dosage: 1 DAY PO
     Route: 048
     Dates: start: 20061107, end: 20080226
  3. EFFEXOR XR [Suspect]
     Indication: PANIC ATTACK
     Dosage: 1 DAY PO
     Route: 048
     Dates: start: 20061107, end: 20080226

REACTIONS (9)
  - ABNORMAL DREAMS [None]
  - ANXIETY [None]
  - CYSTITIS [None]
  - GASTROINTESTINAL DISORDER [None]
  - INSOMNIA [None]
  - MUSCLE TWITCHING [None]
  - SUICIDAL IDEATION [None]
  - TREMOR [None]
  - URINARY INCONTINENCE [None]
